FAERS Safety Report 14643248 (Version 1)
Quarter: 2018Q1

REPORT INFORMATION
  Report Type: Spontaneous
  Country: US (occurrence: US)
  Receive Date: 20180315
  Receipt Date: 20180315
  Transmission Date: 20180509
  Serious: Yes (Life-Threatening, Hospitalization, Other)
  Sender: FDA-Public Use
  Company Number: None

PATIENT
  Age: 59 Year
  Sex: Male
  Weight: 114 kg

DRUGS (1)
  1. DOBUTAMINE [Suspect]
     Active Substance: DOBUTAMINE\DOBUTAMINE HYDROCHLORIDE
     Indication: CARDIAC FAILURE CONGESTIVE
     Dosage: ?          OTHER FREQUENCY:CONT. INFUSION;?
     Route: 041
     Dates: start: 20180310, end: 20180314

REACTIONS (6)
  - Product substitution issue [None]
  - Seizure [None]
  - Dysphemia [None]
  - Speech disorder [None]
  - Tremor [None]
  - Product compounding quality issue [None]

NARRATIVE: CASE EVENT DATE: 20180314
